FAERS Safety Report 16385325 (Version 1)
Quarter: 2019Q2

REPORT INFORMATION
  Report Type: Report from Study
  Country: US (occurrence: US)
  Receive Date: 20190603
  Receipt Date: 20190603
  Transmission Date: 20190711
  Serious: Yes (Other)
  Sender: FDA-Public Use
  Company Number: US-MYLANLABS-2019M1051568

PATIENT
  Sex: Female

DRUGS (4)
  1. DEXAMETHASONE. [Suspect]
     Active Substance: DEXAMETHASONE
     Indication: CHEMOTHERAPY
     Dosage: 2 CYCLES ON DAYS 1, 4, 8 AND 11 IN A 21-DAY CYCLE
     Route: 042
  2. BORTEZOMIB. [Suspect]
     Active Substance: BORTEZOMIB
     Indication: BONE MARROW CONDITIONING REGIMEN
     Dosage: 2 CYCLES ON DAYS 1, 4, 8 AND 11 IN A 21-DAY CYCLE
     Route: 042
  3. MELPHALAN. [Suspect]
     Active Substance: MELPHALAN
     Indication: BONE MARROW CONDITIONING REGIMEN
     Route: 065
  4. BORTEZOMIB. [Suspect]
     Active Substance: BORTEZOMIB
     Indication: CHEMOTHERAPY
     Dosage: ON DAYS -6, -3, +1 AND +4
     Route: 042

REACTIONS (1)
  - Splenic rupture [Recovered/Resolved]
